FAERS Safety Report 14653526 (Version 1)
Quarter: 2018Q1

REPORT INFORMATION
  Report Type: Spontaneous
  Country: US (occurrence: US)
  Receive Date: 20180316
  Receipt Date: 20180316
  Transmission Date: 20180509
  Serious: Yes (Hospitalization)
  Sender: FDA-Public Use
  Company Number: None

PATIENT
  Age: 45 Year
  Sex: Female
  Weight: 76.5 kg

DRUGS (5)
  1. NOVOLOG [Suspect]
     Active Substance: INSULIN ASPART
     Indication: TYPE 1 DIABETES MELLITUS
     Dosage: QUANTITY:1 BOTTLE;OTHER FREQUENCY:CONTINUOUS;OTHER ROUTE:VIA PUMP?
     Dates: start: 20180205, end: 20180301
  2. VITAMIN B12 [Concomitant]
     Active Substance: CYANOCOBALAMIN
  3. OILY NOSE DROPS [Concomitant]
  4. FOLIC ACID. [Concomitant]
     Active Substance: FOLIC ACID
  5. B6 [Concomitant]
     Active Substance: PYRIDOXINE HYDROCHLORIDE

REACTIONS (5)
  - Blood glucose increased [None]
  - Infection [None]
  - Product storage error [None]
  - Product distribution issue [None]
  - Influenza [None]

NARRATIVE: CASE EVENT DATE: 20180205
